FAERS Safety Report 6432691-8 (Version None)
Quarter: 2009Q4

REPORT INFORMATION
  Report Type: 
  Country: None (occurrence: None)
  Receive Date: 20091109
  Receipt Date: 20091029
  Transmission Date: 20100525
  Serious: Yes (Other)
  Sender: FDA-Public Use
  Company Number: GB-JNJFOC-20090905420

PATIENT
  Sex: Male

DRUGS (4)
  1. INTELENCE [Suspect]
     Indication: HIV INFECTION
     Route: 048
  2. TRUVADA [Concomitant]
  3. SILDENAFIL [Concomitant]
  4. FEIBA VH IMMUNO [Concomitant]

REACTIONS (2)
  - ANXIETY [None]
  - DEPRESSION [None]
